FAERS Safety Report 10591082 (Version 8)
Quarter: 2015Q4

REPORT INFORMATION
  Report Type: Report from Study
  Country: US (occurrence: US)
  Receive Date: 20141118
  Receipt Date: 20151015
  Transmission Date: 20160304
  Serious: Yes (Hospitalization, Other)
  Sender: FDA-Public Use
  Company Number: US-SANOFI-AVENTIS-2013SA002272

PATIENT
  Age: 67 Year
  Sex: Female

DRUGS (7)
  1. AUBAGIO [Suspect]
     Active Substance: TERIFLUNOMIDE
     Indication: MULTIPLE SCLEROSIS
     Route: 048
  2. LEVEMIR [Concomitant]
     Active Substance: INSULIN DETEMIR
  3. AUBAGIO [Suspect]
     Active Substance: TERIFLUNOMIDE
     Indication: MULTIPLE SCLEROSIS
     Route: 048
     Dates: start: 20121121
  4. VICTOZA [Concomitant]
     Active Substance: LIRAGLUTIDE
  5. LYRICA [Concomitant]
     Active Substance: PREGABALIN
  6. AMPYRA [Concomitant]
     Active Substance: DALFAMPRIDINE
  7. AUBAGIO [Suspect]
     Active Substance: TERIFLUNOMIDE
     Indication: MULTIPLE SCLEROSIS
     Route: 048
     Dates: start: 20121219

REACTIONS (17)
  - Muscular weakness [Recovering/Resolving]
  - Gait disturbance [Unknown]
  - Urinary tract infection [Recovering/Resolving]
  - Bedridden [Unknown]
  - Dizziness [Unknown]
  - Arthropathy [Unknown]
  - Back injury [Unknown]
  - Alopecia [Unknown]
  - Nausea [Unknown]
  - Back pain [Recovering/Resolving]
  - Road traffic accident [Unknown]
  - Back disorder [Recovering/Resolving]
  - Activities of daily living impaired [Recovering/Resolving]
  - Unevaluable event [Unknown]
  - Fatigue [Unknown]
  - Spinal disorder [Unknown]
  - Drug dose omission [Unknown]

NARRATIVE: CASE EVENT DATE: 201402
